FAERS Safety Report 5280963-5 (Version None)
Quarter: 2007Q1

REPORT INFORMATION
  Report Type: 
  Country: None (occurrence: None)
  Receive Date: 20061229
  Receipt Date: 20060921
  Transmission Date: 20070707
  Serious: Yes (Other)
  Sender: FDA-Public Use
  Company Number: 2006UW18505

PATIENT
  Age: 69 Year
  Sex: Female
  Weight: 70.306 kg

DRUGS (2)
  1. CRESTOR [Suspect]
     Indication: BLOOD CHOLESTEROL INCREASED
     Dosage: 10 MG QOD PO
     Route: 048
     Dates: start: 20060701
  2. DIURETIC [Concomitant]

REACTIONS (2)
  - DYSGEUSIA [None]
  - SENSITIVITY OF TEETH [None]
